FAERS Safety Report 9407265 (Version 2)
Quarter: 2013Q3

REPORT INFORMATION
  Report Type: Spontaneous
  Country: US (occurrence: US)
  Receive Date: 20130718
  Receipt Date: 20130811
  Transmission Date: 20140515
  Serious: No
  Sender: FDA-Public Use
  Company Number: US-009507513-1306USA012797

PATIENT
  Age: 62 Year
  Sex: Female

DRUGS (1)
  1. ZETIA [Suspect]
     Dosage: UNK MG, UNK
     Dates: start: 2003

REACTIONS (3)
  - Pruritus [Recovered/Resolved]
  - Drug hypersensitivity [Recovered/Resolved]
  - Depression [Recovered/Resolved]
